FAERS Safety Report 15230979 (Version 1)
Quarter: 2018Q3

REPORT INFORMATION
  Report Type: Spontaneous
  Country: US (occurrence: US)
  Receive Date: 20180802
  Receipt Date: 20180802
  Transmission Date: 20181010
  Serious: Yes (Other)
  Sender: FDA-Public Use
  Company Number: US-ACCORD-063230

PATIENT
  Age: 54 Year
  Sex: Female

DRUGS (26)
  1. CYTOXAN [Suspect]
     Active Substance: CYCLOPHOSPHAMIDE
     Indication: BREAST CANCER
     Dates: start: 20140905, end: 20141017
  2. LEVOTHYROXINE. [Concomitant]
     Active Substance: LEVOTHYROXINE
  3. DEMEROL [Concomitant]
     Active Substance: MEPERIDINE HYDROCHLORIDE
     Dosage: DOSE: 10
  4. DEXAMETHASONE. [Concomitant]
     Active Substance: DEXAMETHASONE
     Dosage: DOSE: 12
  5. LEVAQUIN [Concomitant]
     Active Substance: LEVOFLOXACIN
  6. DOCETAXEL ACCORD [Suspect]
     Active Substance: DOCETAXEL
     Indication: BREAST CANCER
     Dosage: NUMBER OF CYCLES: 03?EVERY THREE WEEKS
     Dates: start: 20140905, end: 20141017
  7. RANITIDINE. [Concomitant]
     Active Substance: RANITIDINE
  8. PROVENTIL [Concomitant]
     Active Substance: ALBUTEROL
  9. SODIUM CHLORIDE. [Concomitant]
     Active Substance: SODIUM CHLORIDE
  10. LORTAB [Concomitant]
     Active Substance: ACETAMINOPHEN\HYDROCODONE BITARTRATE
  11. SALBUTAMOL [Concomitant]
     Active Substance: ALBUTEROL
  12. FLONASE [Concomitant]
     Active Substance: FLUTICASONE PROPIONATE
  13. GRANISETRON HYDROCHLORIDE. [Concomitant]
     Active Substance: GRANISETRON HYDROCHLORIDE
  14. CYCLOBENZAPRINE. [Concomitant]
     Active Substance: CYCLOBENZAPRINE
  15. BENADRYL [Concomitant]
     Active Substance: DIPHENHYDRAMINE HYDROCHLORIDE
  16. QVAR [Concomitant]
     Active Substance: BECLOMETHASONE DIPROPIONATE
  17. FOSAPREPITANT DIMEGLUMINE. [Concomitant]
     Active Substance: FOSAPREPITANT DIMEGLUMINE
     Dosage: DOSE: 150
  18. PEGFILGRASTIM [Concomitant]
     Active Substance: PEGFILGRASTIM
  19. SODIUM CHLORIDE. [Concomitant]
     Active Substance: SODIUM CHLORIDE
     Dosage: DOSE: 10
  20. NATURE^^S BOUNTY EXTRA STRENGTH BIOTIN [Concomitant]
     Dosage: STRENGTH: 500 MG
  21. HYDROCHLOROTHIAZIDE. [Concomitant]
     Active Substance: HYDROCHLOROTHIAZIDE
  22. HEPARIN [Concomitant]
     Active Substance: HEPARIN SODIUM
  23. PARACETAMOL [Concomitant]
     Active Substance: ACETAMINOPHEN
  24. DIPHENHYDRAMINE. [Concomitant]
     Active Substance: DIPHENHYDRAMINE
     Dosage: DOSE: 50
  25. SODIUM CHLORIDE. [Concomitant]
     Active Substance: SODIUM CHLORIDE
     Dosage: DOSE: 10
  26. PALONOSETRON. [Concomitant]
     Active Substance: PALONOSETRON HYDROCHLORIDE
     Dosage: DOSE: 0.25

REACTIONS (1)
  - Alopecia [Not Recovered/Not Resolved]

NARRATIVE: CASE EVENT DATE: 20140914
